FAERS Safety Report 16687898 (Version 1)
Quarter: 2019Q4

REPORT INFORMATION
  Report Type: Spontaneous
  Country: US (occurrence: US)
  Receive Date: 20190808
  Receipt Date: 20190808
  Transmission Date: 20200122
  Serious: Yes (Hospitalization)
  Sender: FDA-Public Use
  Company Number: None

PATIENT
  Age: 45 Year
  Sex: Female

DRUGS (5)
  1. DIVALPROEX DR 250MG [Concomitant]
     Active Substance: DIVALPROEX SODIUM
     Dates: start: 20181008
  2. AJOVY [Suspect]
     Active Substance: FREMANEZUMAB-VFRM
     Indication: MIGRAINE PROPHYLAXIS
     Dosage: ?          OTHER FREQUENCY:MONTHLY;?
     Route: 058
     Dates: start: 20190613, end: 20190803
  3. HYDROCODONE/APAP 5/325MG [Concomitant]
     Dates: start: 20190308
  4. LEVOXYL 25MCG [Concomitant]
     Dates: start: 20181019
  5. DIPHENOXYLATE/ATROPINE 2.5MG [Concomitant]
     Dates: start: 20180216

REACTIONS (4)
  - Hypoglycaemia [None]
  - Thrombophlebitis superficial [None]
  - Peripheral swelling [None]
  - Rhabdomyolysis [None]

NARRATIVE: CASE EVENT DATE: 20190803
